FAERS Safety Report 12465760 (Version 1)
Quarter: 2016Q2

REPORT INFORMATION
  Report Type: Spontaneous
  Country: GB (occurrence: GB)
  Receive Date: 20160614
  Receipt Date: 20160614
  Transmission Date: 20160815
  Serious: Yes (Other)
  Sender: FDA-Public Use
  Company Number: GB-JNJFOC-20160609811

PATIENT
  Sex: Female

DRUGS (1)
  1. XARELTO [Suspect]
     Active Substance: RIVAROXABAN
     Indication: PRODUCT USED FOR UNKNOWN INDICATION
     Route: 048
     Dates: start: 201512, end: 201605

REACTIONS (8)
  - Onychomadesis [Not Recovered/Not Resolved]
  - Balance disorder [Recovered/Resolved]
  - Skin fissures [Recovering/Resolving]
  - Pain in extremity [Recovering/Resolving]
  - Skin haemorrhage [Recovering/Resolving]
  - Nausea [Recovered/Resolved]
  - Skin discolouration [Recovering/Resolving]
  - Hypoaesthesia [Recovering/Resolving]
